FAERS Safety Report 4710551-8 (Version None)
Quarter: 2005Q3

REPORT INFORMATION
  Report Type: 
  Country: None (occurrence: None)
  Receive Date: 20050711
  Receipt Date: 20050628
  Transmission Date: 20060218
  Serious: Yes (Disabling)
  Sender: FDA-Public Use
  Company Number: GBWYE783929JUN05

PATIENT
  Age: 34 Year
  Sex: Female
  Weight: 40 kg

DRUGS (8)
  1. ENBREL [Suspect]
     Indication: RHEUMATOID ARTHRITIS
     Dosage: UNKNOWN
     Route: 058
  2. FOLIC ACID [Concomitant]
     Indication: RHEUMATOID ARTHRITIS
  3. VALSARTAN [Concomitant]
     Indication: BLOOD PRESSURE
  4. VOLTAROL - SLOW RELEASE [Concomitant]
     Indication: RHEUMATOID ARTHRITIS
  5. TRAMADOL [Concomitant]
     Indication: RHEUMATOID ARTHRITIS
  6. ATENOLOL [Concomitant]
     Indication: BLOOD PRESSURE
  7. CARDURA [Concomitant]
     Indication: BLOOD PRESSURE
  8. BENDROFLUAZIDE [Concomitant]
     Indication: BLOOD PRESSURE

REACTIONS (1)
  - UVEITIS [None]
